FAERS Safety Report 22052167 (Version 2)
Quarter: 2023Q2

REPORT INFORMATION
  Report Type: Spontaneous
  Country: JP (occurrence: JP)
  Receive Date: 20230302
  Receipt Date: 20230526
  Transmission Date: 20230722
  Serious: Yes (Other)
  Sender: FDA-Public Use
  Company Number: JP-TAKEDA-2022TJP078291

PATIENT
  Age: 51 Year
  Sex: Female
  Weight: 48 kg

DRUGS (11)
  1. ALUNBRIG [Suspect]
     Active Substance: BRIGATINIB
     Indication: Lung neoplasm malignant
     Dosage: 90 MILLIGRAM, QD
     Route: 048
     Dates: start: 20221110, end: 20221116
  2. ALUNBRIG [Suspect]
     Active Substance: BRIGATINIB
     Dosage: 180 MILLIGRAM, QD
     Route: 048
     Dates: start: 20221117, end: 20221207
  3. ALUNBRIG [Suspect]
     Active Substance: BRIGATINIB
     Dosage: 90 MILLIGRAM, QD
     Route: 048
     Dates: start: 20230126, end: 20230308
  4. ROZEREM [Concomitant]
     Active Substance: RAMELTEON
     Indication: Insomnia
     Dosage: 8 MILLIGRAM, QD
     Route: 048
     Dates: start: 20210728
  5. DAYVIGO [Concomitant]
     Active Substance: LEMBOREXANT
     Indication: Insomnia
     Dosage: 5 MILLIGRAM
     Route: 048
     Dates: start: 20210728
  6. CALCIUM CARBONATE\CHOLECALCIFEROL\MAGNESIUM CARBONATE [Concomitant]
     Active Substance: CALCIUM CARBONATE\CHOLECALCIFEROL\MAGNESIUM CARBONATE
     Indication: Lung neoplasm malignant
     Dosage: 2 DOSAGE FORM, QD
     Route: 048
     Dates: start: 20210803
  7. CALCIUM CARBONATE\CHOLECALCIFEROL\MAGNESIUM CARBONATE [Concomitant]
     Active Substance: CALCIUM CARBONATE\CHOLECALCIFEROL\MAGNESIUM CARBONATE
     Indication: Metastases to bone
  8. AZUNOL [Concomitant]
     Indication: Stomatitis
     Dosage: UNK UNK, TID
     Dates: start: 20221019, end: 20221207
  9. DENOSUMAB [Concomitant]
     Active Substance: DENOSUMAB
     Indication: Lung neoplasm malignant
     Dosage: 120 MILLIGRAM, Q4WEEKS
     Route: 058
     Dates: start: 20210728
  10. DENOSUMAB [Concomitant]
     Active Substance: DENOSUMAB
     Indication: Metastases to bone
  11. PEMAFIBRATE [Concomitant]
     Active Substance: PEMAFIBRATE
     Dosage: UNK
     Route: 065

REACTIONS (2)
  - Nephrotic syndrome [Recovered/Resolved]
  - Diarrhoea [Recovered/Resolved]

NARRATIVE: CASE EVENT DATE: 20221123
